FAERS Safety Report 24428844 (Version 1)
Quarter: 2024Q4

REPORT INFORMATION
  Report Type: Report from Study
  Country: US (occurrence: US)
  Receive Date: 20241011
  Receipt Date: 20241011
  Transmission Date: 20250114
  Serious: Yes (Hospitalization)
  Sender: TEVA
  Company Number: US-TEVA-VS-3251215

PATIENT
  Age: 11 Year
  Sex: Male
  Weight: 53.1 kg

DRUGS (5)
  1. METHOTREXATE [Suspect]
     Active Substance: METHOTREXATE
     Indication: Leukaemia
     Dosage: THE LAST DOSE OF METHOTREXATE PRIOR TO THE SERIOUS ADVERSE EVENT WAS TAKEN ON -05-30
     Route: 048
     Dates: start: 20221215
  2. MERCAPTOPURINE [Suspect]
     Active Substance: MERCAPTOPURINE
     Indication: Leukaemia
     Dosage: THE LAST DOSE OF MERCAPTOPURINE PRIOR TO THE SERIOUS ADVERSE EVENT WAS TAKEN ON AN UNSPECIFIED DATE.
     Route: 048
     Dates: start: 20220714
  3. PREDNISONE [Suspect]
     Active Substance: PREDNISONE
     Indication: Leukaemia
     Dosage: THE LAST DOSE OF PREDNISONE PRIOR TO THE SERIOUS ADVERSE EVENT WAS TAKEN ON 2024-05-13.
     Route: 048
     Dates: start: 20230511
  4. VINCRISTINE [Suspect]
     Active Substance: VINCRISTINE
     Indication: Leukaemia
     Dosage: LAST DOSE OF VINCRISTINE PRIOR TO THE SERIOUS ADVERSE EVENT WAS TAKEN ON 2024-05-09
     Route: 042
     Dates: start: 20220728
  5. RUXOLITINIB [Suspect]
     Active Substance: RUXOLITINIB
     Indication: Leukaemia
     Dosage: THE LAST DOSE OF RUXOLITINIB PRIOR TO THE SERIOUS ADVERSE EVENT WAS TAKEN ON 2024-05-22.
     Route: 048
     Dates: start: 20220714

REACTIONS (1)
  - Anaemia [Recovered/Resolved]

NARRATIVE: CASE EVENT DATE: 20240602
